FAERS Safety Report 8911157 (Version 1)
Quarter: 2012Q4

REPORT INFORMATION
  Report Type: 
  Country: US (occurrence: US)
  Receive Date: 20121116
  Receipt Date: 20121116
  Transmission Date: 20130627
  Serious: No
  Sender: FDA-Public Use
  Company Number: US-GLAXOSMITHKLINE-A0988280A

PATIENT
  Age: 73 Year
  Sex: Female

DRUGS (1)
  1. VOTRIENT [Suspect]
     Indication: LIPOSARCOMA RECURRENT
     Dosage: 800MG Per day
     Route: 065

REACTIONS (3)
  - Hyperchlorhydria [Unknown]
  - Decreased appetite [Unknown]
  - Adverse event [Unknown]
